FAERS Safety Report 8381408-9 (Version None)
Quarter: 2012Q2

REPORT INFORMATION
  Report Type: 
  Country: None (occurrence: None)
  Receive Date: 20120523
  Receipt Date: 20120521
  Transmission Date: 20120825
  Serious: Yes (Life-Threatening, Hospitalization)
  Sender: FDA-Public Use
  Company Number: PHHY2012TR043269

PATIENT
  Sex: Female
  Weight: 78 kg

DRUGS (2)
  1. NAPROXEN [Suspect]
     Indication: ANALGESIC THERAPY
     Dosage: 10 DF, ONCE/SINGLE
     Route: 048
     Dates: start: 20120513, end: 20120513
  2. PARACETAMOL+CAFFEINE [Suspect]
     Indication: ANALGESIC THERAPY
     Dosage: 10 DF, ONCE/SINGLE
     Route: 048
     Dates: start: 20120513, end: 20120513

REACTIONS (1)
  - SUICIDE ATTEMPT [None]
